FAERS Safety Report 11122141 (Version 2)
Quarter: 2015Q2

REPORT INFORMATION
  Report Type: Spontaneous
  Country: US (occurrence: US)
  Receive Date: 20150519
  Receipt Date: 20150615
  Transmission Date: 20150821
  Serious: Yes (Other)
  Sender: FDA-Public Use
  Company Number: US-BAYER-2015-233358

PATIENT
  Age: 47 Year
  Sex: Female
  Weight: 90.7 kg

DRUGS (2)
  1. GADAVIST [Suspect]
     Active Substance: GADOBUTROL
     Indication: NUCLEAR MAGNETIC RESONANCE IMAGING SPINAL
     Dosage: 10 ML, ONCE
     Route: 042
     Dates: start: 20150514, end: 20150514
  2. GADAVIST [Suspect]
     Active Substance: GADOBUTROL
     Indication: NECK PAIN

REACTIONS (3)
  - Erythema [Recovered/Resolved]
  - Urticaria [Recovered/Resolved]
  - Flushing [Recovered/Resolved]

NARRATIVE: CASE EVENT DATE: 20150514
